FAERS Safety Report 16729152 (Version 1)
Quarter: 2019Q4

REPORT INFORMATION
  Report Type: Spontaneous
  Country: US (occurrence: US)
  Receive Date: 20190821
  Receipt Date: 20190821
  Transmission Date: 20200122
  Serious: Yes (Other)
  Sender: FDA-Public Use
  Company Number: None

PATIENT
  Age: 62 Year
  Sex: Female
  Weight: 53.55 kg

DRUGS (1)
  1. CEVIMELINE 30 MG [Suspect]
     Active Substance: CEVIMELINE
     Indication: SJOGREN^S SYNDROME
     Dosage: ?          QUANTITY:1 CAPSULE(S);?
     Route: 048

REACTIONS (5)
  - Product substitution issue [None]
  - Dry mouth [None]
  - Dry eye [None]
  - Manufacturing materials issue [None]
  - Drug ineffective [None]

NARRATIVE: CASE EVENT DATE: 20190101
